FAERS Safety Report 17933590 (Version 1)
Quarter: 2020Q2

REPORT INFORMATION
  Report Type: Spontaneous
  Country: US (occurrence: US)
  Receive Date: 20200623
  Receipt Date: 20200623
  Transmission Date: 20200714
  Serious: No
  Sender: FDA-Public Use
  Company Number: US-TITAN PHARMACEUTICALS-2020TAN00031

PATIENT
  Age: 26 Year
  Sex: Female
  Weight: 81.18 kg

DRUGS (2)
  1. PROBUPHINE [Suspect]
     Active Substance: BUPRENORPHINE HYDROCHLORIDE
     Indication: DRUG DEPENDENCE
     Dosage: 4 DOSAGE UNITS, ONCE RIGHT ARM
     Dates: start: 20200506
  2. UNSPECIFIED PSYCHIATRIC MEDICATIONS [Concomitant]

REACTIONS (3)
  - Rash [Unknown]
  - Swelling face [Recovering/Resolving]
  - Back pain [Not Recovered/Not Resolved]

NARRATIVE: CASE EVENT DATE: 202005
